FAERS Safety Report 5056386-0 (Version None)
Quarter: 2006Q3

REPORT INFORMATION
  Report Type: 
  Country: None (occurrence: None)
  Receive Date: 20060720
  Receipt Date: 20060228
  Transmission Date: 20061208
  Serious: Yes (Hospitalization)
  Sender: FDA-Public Use
  Company Number: DE-BRISTOL-MYERS SQUIBB COMPANY-13297866

PATIENT
  Age: 57 Year
  Sex: Female
  Weight: 84 kg

DRUGS (6)
  1. CYCLOPHOSPHAMIDE [Suspect]
     Indication: BREAST CANCER
     Route: 042
     Dates: start: 20060412, end: 20060510
  2. PACLITAXEL [Suspect]
     Indication: BREAST CANCER
     Route: 042
     Dates: start: 20060222, end: 20060322
  3. EPIRUBICIN [Suspect]
     Indication: BREAST CANCER
     Route: 042
     Dates: start: 20060105, end: 20060208
  4. TAVANIC [Concomitant]
     Route: 048
     Dates: start: 20060428, end: 20060505
  5. EPOETIN BETA [Concomitant]
     Dates: start: 20060105, end: 20060524
  6. NEULASTA [Concomitant]
     Route: 058
     Dates: start: 20060106, end: 20060511

REACTIONS (5)
  - DIZZINESS [None]
  - FEBRILE NEUTROPENIA [None]
  - NEURALGIA [None]
  - PNEUMONIA [None]
  - VIRAL INFECTION [None]
